FAERS Safety Report 5636540-7 (Version None)
Quarter: 2008Q1

REPORT INFORMATION
  Report Type: 
  Country: None (occurrence: None)
  Receive Date: 20080225
  Receipt Date: 20080128
  Transmission Date: 20080703
  Serious: No
  Sender: FDA-Public Use
  Company Number: US-BAYER-200811939NA

PATIENT
  Age: 53 Year
  Sex: Male

DRUGS (2)
  1. LEVITRA [Suspect]
     Indication: ERECTILE DYSFUNCTION
     Dosage: TOTAL DAILY DOSE: 20 MG  UNIT DOSE: 20 MG
     Route: 048
     Dates: start: 20080120, end: 20080120
  2. AMITRIPTYLINE HCL [Concomitant]
     Dosage: AS USED: 50 MG

REACTIONS (2)
  - ERECTILE DYSFUNCTION [None]
  - PHARMACEUTICAL PRODUCT COMPLAINT [None]
